FAERS Safety Report 10255219 (Version 3)
Quarter: 2014Q2

REPORT INFORMATION
  Report Type: Spontaneous
  Country: VE (occurrence: VE)
  Receive Date: 20140624
  Receipt Date: 20140630
  Transmission Date: 20141212
  Serious: Yes (Other)
  Sender: FDA-Public Use
  Company Number: VE-AMGEN-VENSP2014034493

PATIENT
  Age: 58 Year
  Sex: Male
  Weight: 78 kg

DRUGS (10)
  1. VECTIBIX [Suspect]
     Indication: COLON CANCER
     Dosage: 3 AMPOLES OF 20MG/ML, EACH FIFTEEN DAYS
     Route: 042
     Dates: start: 20140429
  2. VECTIBIX [Suspect]
     Indication: METASTASES TO LIVER
  3. LEUCOVORIN                         /00566701/ [Concomitant]
     Indication: COLON CANCER
     Dosage: UNK
     Dates: start: 20140429
  4. LEUCOVORIN                         /00566701/ [Concomitant]
     Indication: METASTASES TO LIVER
  5. 5 FLUOROURACIL                     /00098801/ [Concomitant]
     Indication: COLON CANCER
     Dosage: UNK
     Dates: start: 20140429
  6. 5 FLUOROURACIL                     /00098801/ [Concomitant]
     Indication: METASTASES TO LIVER
  7. IRINOTECAN [Concomitant]
     Indication: COLON CANCER
     Dosage: UNK
     Dates: start: 20140429
  8. IRINOTECAN [Concomitant]
     Indication: METASTASES TO LIVER
  9. NORVASC [Concomitant]
     Indication: HYPERTENSION
     Dosage: 5 MG, QD
     Dates: start: 2011
  10. ENALAPRIL [Concomitant]
     Indication: HYPERTENSION
     Dosage: 5 MG, QD
     Route: 048
     Dates: start: 2011

REACTIONS (3)
  - Rash [Recovered/Resolved]
  - Bile duct obstruction [Unknown]
  - Chromaturia [Not Recovered/Not Resolved]
